FAERS Safety Report 22061468 (Version 1)
Quarter: 2023Q1

REPORT INFORMATION
  Report Type: Report from Study
  Country: CA (occurrence: CA)
  Receive Date: 20230304
  Receipt Date: 20230304
  Transmission Date: 20230417
  Serious: Yes (Other)
  Sender: FDA-Public Use
  Company Number: CA-ABBVIE-22K-028-4530286-00

PATIENT
  Sex: Male

DRUGS (1)
  1. HUMIRA [Suspect]
     Active Substance: ADALIMUMAB
     Indication: Crohn^s disease
     Dosage: 40MG/0.8ML, 40 MG
     Route: 058
     Dates: start: 20170217

REACTIONS (5)
  - Stoma creation [Unknown]
  - Dizziness [Unknown]
  - Stoma site haemorrhage [Unknown]
  - Post procedural haemorrhage [Unknown]
  - Crohn^s disease [Unknown]

NARRATIVE: CASE EVENT DATE: 20220101
